FAERS Safety Report 5830809-9 (Version None)
Quarter: 2008Q3

REPORT INFORMATION
  Report Type: 
  Country: None (occurrence: None)
  Receive Date: 20080801
  Receipt Date: 20071206
  Transmission Date: 20090109
  Serious: Yes (Other)
  Sender: FDA-Public Use
  Company Number: US-BRISTOL-MYERS SQUIBB COMPANY-14007207

PATIENT

DRUGS (2)
  1. COUMADIN [Suspect]
     Route: 048
  2. PLAVIX [Suspect]

REACTIONS (1)
  - COMA [None]
